FAERS Safety Report 4970855-0 (Version None)
Quarter: 2006Q2

REPORT INFORMATION
  Report Type: 
  Country: None (occurrence: None)
  Receive Date: 20060406
  Receipt Date: 20060321
  Transmission Date: 20061013
  Serious: Yes (Hospitalization)
  Sender: FDA-Public Use
  Company Number: FR200603005242

PATIENT
  Age: 62 Year
  Sex: Female

DRUGS (3)
  1. FORTEO [Suspect]
     Indication: OSTEOPOROSIS
     Dosage: 20 UG, DAILY (1/D), SUBCUTANEOUS
     Route: 058
     Dates: start: 20060307
  2. FORTEO PEN (FORTEO PEN) PEN, DISPOSABLE [Concomitant]
  3. DEBRIDAT (TRIMEBUTINE MALEATE) [Concomitant]

REACTIONS (5)
  - ABDOMINAL PAIN [None]
  - ABSCESS INTESTINAL [None]
  - HAEMORRHOIDS [None]
  - PYREXIA [None]
  - VOMITING [None]
